FAERS Safety Report 4845685-0 (Version None)
Quarter: 2005Q4

REPORT INFORMATION
  Report Type: 
  Country: None (occurrence: None)
  Receive Date: 20051206
  Receipt Date: 20051124
  Transmission Date: 20060501
  Serious: No
  Sender: FDA-Public Use
  Company Number: 2005UW18139

PATIENT
  Age: 80 Year
  Sex: Female

DRUGS (15)
  1. PRILOSEC [Suspect]
     Route: 048
  2. NEURONTIN [Suspect]
     Indication: TREMOR
     Route: 048
     Dates: start: 20040101
  3. ACCUPRIL [Suspect]
     Indication: HYPERTENSION
     Route: 048
  4. KLONOPIN [Concomitant]
  5. LOPRESSOR [Concomitant]
  6. SYNTHROID [Concomitant]
  7. AVANDIA [Concomitant]
  8. CENTRUM SILVER [Concomitant]
  9. MACRODANTIN [Concomitant]
  10. ASPIRIN [Concomitant]
  11. MIACALCIN [Concomitant]
  12. PRESERVISION [Concomitant]
     Indication: NUTRITIONAL SUPPORT
  13. DARVOCET [Concomitant]
  14. PANAZ [Concomitant]
  15. TRIAVIL [Concomitant]

REACTIONS (8)
  - AMNESIA [None]
  - ASTHENIA [None]
  - BLOOD SODIUM DECREASED [None]
  - BODY HEIGHT DECREASED [None]
  - DIFFICULTY IN WALKING [None]
  - DRY MOUTH [None]
  - HYPERTENSION [None]
  - MALNUTRITION [None]
